FAERS Safety Report 14582723 (Version 1)
Quarter: 2018Q1

REPORT INFORMATION
  Report Type: Spontaneous
  Country: FR (occurrence: FR)
  Receive Date: 20180228
  Receipt Date: 20180228
  Transmission Date: 20180509
  Serious: Yes (Hospitalization)
  Sender: FDA-Public Use
  Company Number: FR-SA-2018SA046712

PATIENT
  Age: 95 Year
  Sex: Female
  Weight: 38 kg

DRUGS (2)
  1. LOVENOX [Suspect]
     Active Substance: ENOXAPARIN SODIUM
     Indication: PROPHYLAXIS
     Route: 058
     Dates: start: 20171105, end: 20171110
  2. ARIXTRA [Suspect]
     Active Substance: FONDAPARINUX SODIUM
     Indication: PROPHYLAXIS
     Route: 058
     Dates: start: 20171030, end: 20171104

REACTIONS (2)
  - Shock [Recovered/Resolved]
  - Haematoma [Recovered/Resolved with Sequelae]

NARRATIVE: CASE EVENT DATE: 201711
